FAERS Safety Report 5066156-5 (Version None)
Quarter: 2006Q3

REPORT INFORMATION
  Report Type: 
  Country: None (occurrence: None)
  Receive Date: 20060725
  Receipt Date: 20060725
  Transmission Date: 20061208
  Serious: Yes (Other)
  Sender: FDA-Public Use
  Company Number: GB200607000056

PATIENT

DRUGS (1)
  1. FORTEO [Suspect]

REACTIONS (1)
  - LUNG NEOPLASM MALIGNANT [None]
